FAERS Safety Report 24868998 (Version 1)
Quarter: 2025Q1

REPORT INFORMATION
  Report Type: Spontaneous
  Country: US (occurrence: None)
  Receive Date: 20250117
  Receipt Date: 20250117
  Transmission Date: 20250409
  Serious: Yes (Hospitalization)
  Sender: FDA-CTU
  Company Number: None

PATIENT
  Age: 73 Year
  Sex: Male
  Weight: 58.5 kg

DRUGS (2)
  1. OTEZLA [Suspect]
     Active Substance: APREMILAST
     Indication: Psoriasis
     Dosage: FREQUENCY : TWICE A DAY;?
     Route: 048
  2. OTEZLA [Concomitant]
     Active Substance: APREMILAST
     Dates: start: 20240127

REACTIONS (5)
  - Muscular weakness [None]
  - Oxygen saturation decreased [None]
  - Fatigue [None]
  - Therapy change [None]
  - Pneumonia [None]

NARRATIVE: CASE EVENT DATE: 20250112
